FAERS Safety Report 7281422-0 (Version None)
Quarter: 2011Q1

REPORT INFORMATION
  Report Type: 
  Country: None (occurrence: None)
  Receive Date: 20110208
  Receipt Date: 20110201
  Transmission Date: 20110831
  Serious: Yes (Other)
  Sender: FDA-Public Use
  Company Number: US-BAYER-2011-011030

PATIENT
  Age: 47 Year
  Sex: Male

DRUGS (1)
  1. AVELOX [Suspect]
     Indication: BRONCHITIS
     Dosage: 400 MG, UNK
     Route: 048
     Dates: start: 20110126, end: 20110126

REACTIONS (2)
  - HYPERSENSITIVITY [None]
  - BRONCHIAL HYPERREACTIVITY [None]
